FAERS Safety Report 21764162 (Version 1)
Quarter: 2022Q4

REPORT INFORMATION
  Report Type: Report from Study
  Country: US (occurrence: US)
  Receive Date: 20221222
  Receipt Date: 20221222
  Transmission Date: 20230112
  Serious: No
  Sender: FDA-Public Use
  Company Number: US-ABBVIE-4245740

PATIENT
  Sex: Male

DRUGS (5)
  1. VENCLEXTA [Suspect]
     Active Substance: VENETOCLAX
     Indication: Chronic lymphocytic leukaemia
     Dosage: FORM STRENGTH 100 MILLIGRAM?TAKE ONE TABLET BY MOUTH ON TUESDAY THEN INCREASE TO TWO TABLETS DAIL...
     Route: 048
  2. VENCLEXTA [Suspect]
     Active Substance: VENETOCLAX
     Indication: Chronic lymphocytic leukaemia
     Dosage: SEVEN DAYS?TAKE ONE TABLET BY MOUTH ON TUESDAY THEN INCREASE TO TWO TABLETS DAILY FOR SEVEN DAYS ...
     Route: 048
  3. VENCLEXTA [Suspect]
     Active Substance: VENETOCLAX
     Indication: Chronic lymphocytic leukaemia
     Dosage: SEVEN DAYS?TAKE ONE TABLET BY MOUTH ON TUESDAY THEN INCREASE TO TWO TABLETS DAILY FOR SEVEN DAYS ...
     Route: 048
  4. VENCLEXTA [Suspect]
     Active Substance: VENETOCLAX
     Indication: Chronic lymphocytic leukaemia
     Dosage: SEVEN DAYS?TAKE ONE TABLET BY MOUTH ON TUESDAY THEN INCREASE TO TWO TABLETS DAILY FOR SEVEN DAYS ...
     Route: 048
  5. VENCLEXTA [Suspect]
     Active Substance: VENETOCLAX
     Indication: Chronic lymphocytic leukaemia
     Dosage: TAKE ONE TABLET BY MOUTH ON TUESDAY THEN INCREASE TO TWO TABLETS DAILY FOR SEVEN DAYS THEN INCREA...
     Route: 048

REACTIONS (1)
  - Laboratory test abnormal [Recovered/Resolved]
